FAERS Safety Report 9156911 (Version 1)
Quarter: 2013Q1

REPORT INFORMATION
  Report Type: Spontaneous
  Country: US (occurrence: None)
  Receive Date: 20130308
  Receipt Date: 20130308
  Transmission Date: 20140127
  Serious: No
  Sender: FDA-Public Use
  Company Number: None

PATIENT
  Age: 73 Year
  Sex: 0
  Weight: 63.5 kg

DRUGS (1)
  1. TORSEMIDE [Suspect]
     Indication: CARDIAC OPERATION
     Route: 048
     Dates: start: 20130113, end: 20130306

REACTIONS (5)
  - Constipation [None]
  - Dry eye [None]
  - Headache [None]
  - Myalgia [None]
  - Heart rate irregular [None]
